FAERS Safety Report 20316300 (Version 1)
Quarter: 2022Q1

REPORT INFORMATION
  Report Type: Other
  Country: US (occurrence: None)
  Receive Date: 20220110
  Receipt Date: 20220110
  Transmission Date: 20220423
  Serious: No
  Sender: FDA-Public Use
  Company Number: US-ROCHE-2840620

PATIENT
  Age: 35 Year
  Sex: Female

DRUGS (6)
  1. RITUXIMAB [Suspect]
     Active Substance: RITUXIMAB
     Indication: Neuromyelitis optica spectrum disorder
     Dosage: 5 EXCHANGES ON ALTERNATE DAYS
     Route: 041
     Dates: start: 20180708, end: 201907
  2. RITUXIMAB [Suspect]
     Active Substance: RITUXIMAB
     Dosage: 2 DOSES (2 WEEKS APART EVERY 6 MONTHS)
     Route: 042
  3. MYCOPHENOLATE MOFETIL [Suspect]
     Active Substance: MYCOPHENOLATE MOFETIL
     Indication: Neuromyelitis optica spectrum disorder
     Route: 065
     Dates: start: 201506
  4. METHYLPREDNISOLONE [Concomitant]
     Active Substance: METHYLPREDNISOLONE
     Dosage: FOR 5 DAYS FOR RELAPSES
     Route: 042
     Dates: start: 201207, end: 2019
  5. PREDNISONE [Concomitant]
     Active Substance: PREDNISONE
     Route: 048
     Dates: start: 201402
  6. PREDNISONE [Concomitant]
     Active Substance: PREDNISONE
     Dosage: REDUCED DOSE
     Dates: start: 201503, end: 201808

REACTIONS (2)
  - Off label use [Unknown]
  - No adverse event [Unknown]
